FAERS Safety Report 13528057 (Version 1)
Quarter: 2017Q2

REPORT INFORMATION
  Report Type: Spontaneous
  Country: US (occurrence: US)
  Receive Date: 20170509
  Receipt Date: 20170509
  Transmission Date: 20170830
  Serious: Yes (Hospitalization, Other)
  Sender: FDA-Public Use
  Company Number: US-009507513-1705USA004134

PATIENT
  Age: 74 Year
  Sex: Female

DRUGS (2)
  1. CARFILZOMIB [Suspect]
     Active Substance: CARFILZOMIB
     Indication: PLASMA CELL MYELOMA
     Dosage: DOSE: 20 MG/M2, DAYS 1 + 2 OF EACH 14 DAY CYCLE, STRENGTH: 2 MG/ML,
     Route: 042
     Dates: start: 20160719
  2. DECADRON [Suspect]
     Active Substance: DEXAMETHASONE
     Indication: PLASMA CELL MYELOMA
     Dosage: 4 MG, DAILY, STRENGTH: 10 MG/ML
     Route: 042
     Dates: start: 20160719

REACTIONS (9)
  - Pneumobilia [Unknown]
  - Epistaxis [Unknown]
  - Laceration [Unknown]
  - Loss of consciousness [Recovered/Resolved]
  - Head injury [Unknown]
  - Dizziness [Unknown]
  - Paraesthesia [Unknown]
  - Pneumonia [Recovered/Resolved]
  - Asthenia [Unknown]

NARRATIVE: CASE EVENT DATE: 20160723
